FAERS Safety Report 8322000-1 (Version None)
Quarter: 2012Q2

REPORT INFORMATION
  Report Type: 
  Country: None (occurrence: None)
  Receive Date: 20120430
  Receipt Date: 20120424
  Transmission Date: 20120825
  Serious: Yes (Hospitalization)
  Sender: FDA-Public Use
  Company Number: US-ROCHE-1063006

PATIENT
  Sex: Female
  Weight: 75 kg

DRUGS (2)
  1. COPEGUS [Suspect]
     Indication: HEPATITIS C
     Dosage: DAILY
     Route: 048
     Dates: start: 20120401, end: 20120401
  2. COPEGUS [Suspect]
     Dosage: DAILY
     Route: 048

REACTIONS (1)
  - OVERDOSE [None]
